FAERS Safety Report 10278304 (Version 2)
Quarter: 2014Q3

REPORT INFORMATION
  Report Type: Report from Study
  Country: RO (occurrence: RO)
  Receive Date: 20140704
  Receipt Date: 20140711
  Transmission Date: 20150326
  Serious: Yes (Death, Other)
  Sender: FDA-Public Use
  Company Number: RO-ROCHE-1425284

PATIENT

DRUGS (9)
  1. FLUOROURACIL. [Suspect]
     Active Substance: FLUOROURACIL
     Dosage: DAY 1 + 2
     Route: 065
  2. IRINOTECAN [Suspect]
     Active Substance: IRINOTECAN
     Indication: RECTAL ADENOCARCINOMA
     Dosage: DAYS 1 AND 15
     Route: 065
  3. CAPECITABINE [Suspect]
     Active Substance: CAPECITABINE
     Dosage: AS CONCOMITANT CHEMOTHERAPY
     Route: 065
  4. OXALIPLATIN. [Suspect]
     Active Substance: OXALIPLATIN
     Indication: RECTAL ADENOCARCINOMA
     Dosage: DAY 1 (CAPOX REGIMEN)
     Route: 065
  5. CAPECITABINE [Suspect]
     Active Substance: CAPECITABINE
     Indication: RECTAL ADENOCARCINOMA
     Dosage: DAYS 1-14
     Route: 048
  6. FLUOROURACIL. [Suspect]
     Active Substance: FLUOROURACIL
     Indication: RECTAL ADENOCARCINOMA
     Dosage: DAY 1 + 2
     Route: 065
  7. OXALIPLATIN. [Suspect]
     Active Substance: OXALIPLATIN
     Dosage: DAY 1 (FOLFOX REGIMEN)
     Route: 065
  8. FOLINIC ACID [Suspect]
     Active Substance: LEUCOVORIN
     Indication: RECTAL ADENOCARCINOMA
     Route: 065
  9. CAPECITABINE [Suspect]
     Active Substance: CAPECITABINE
     Dosage: CAPECITABINE MONOTHERAPY.
     Route: 065

REACTIONS (11)
  - Embolism venous [Fatal]
  - Platelet count decreased [Unknown]
  - Radiation skin injury [Unknown]
  - Peripheral sensory neuropathy [Unknown]
  - Anaemia [Unknown]
  - Proctitis [Unknown]
  - Peripheral motor neuropathy [Unknown]
  - Diarrhoea [Unknown]
  - Vomiting [Unknown]
  - Febrile neutropenia [Unknown]
  - Cystitis noninfective [Unknown]
